FAERS Safety Report 10269984 (Version 2)
Quarter: 2014Q3

REPORT INFORMATION
  Report Type: Spontaneous
  Country: US (occurrence: None)
  Receive Date: 20140625
  Receipt Date: 20140826
  Transmission Date: 20150326
  Serious: Yes (Hospitalization)
  Sender: FDA-Public Use
  Company Number: FK201402460

PATIENT
  Age: 37 Year
  Sex: Female
  Weight: 58.9 kg

DRUGS (9)
  1. CISPLATIN INJECTION (CISPLATIN) (CISPLATIN) [Suspect]
     Active Substance: CISPLATIN
     Indication: BREAST CANCER
     Dosage: 130 MG, 1 IN 3 WK, INTRAVENOUS (NOT OTHERWISE SPECIFIED)?
     Route: 042
     Dates: start: 20140408
  2. ZOFRAN [Concomitant]
     Active Substance: ONDANSETRON HYDROCHLORIDE
  3. OXYCONTIN [Concomitant]
     Active Substance: OXYCODONE HYDROCHLORIDE
  4. INVESTIGATIONAL DRUG [Suspect]
     Active Substance: INVESTIGATIONAL PRODUCT
     Indication: BREAST CANCER
     Dosage: 130 MG, WK, INTRAVENOUS (NOT OTHERWISE SPECIFIED)?
     Route: 042
  5. ATIVAN [Concomitant]
     Active Substance: LORAZEPAM
  6. ZOLOFT [Concomitant]
     Active Substance: SERTRALINE HYDROCHLORIDE
  7. OXYCODONE (OXYCODONE) [Concomitant]
     Active Substance: OXYCODONE
  8. SANCUSO [Concomitant]
     Active Substance: GRANISETRON
  9. ROBITUSSIN AC [Concomitant]

REACTIONS (4)
  - Nausea [None]
  - Vomiting [None]
  - Vertigo [None]
  - Syncope [None]

NARRATIVE: CASE EVENT DATE: 20140421
